FAERS Safety Report 7556007-9 (Version None)
Quarter: 2011Q2

REPORT INFORMATION
  Report Type: 
  Country: None (occurrence: None)
  Receive Date: 20110620
  Receipt Date: 20110610
  Transmission Date: 20111010
  Serious: Yes (Hospitalization, Disabling)
  Sender: FDA-Public Use
  Company Number: US-BIOGENIDEC-2011BI010675

PATIENT
  Age: 53 Year
  Sex: Female
  Weight: 58 kg

DRUGS (11)
  1. TOVIAZ [Concomitant]
     Indication: NEUROGENIC BLADDER
  2. MIRAPEX [Concomitant]
     Indication: RESTLESS LEGS SYNDROME
  3. KLONOPIN [Concomitant]
     Indication: RESTLESS LEGS SYNDROME
  4. DALFAMPRIDINE [Concomitant]
  5. PAROXETINE HCL [Concomitant]
  6. ESTRING [Concomitant]
     Indication: MENOPAUSE
  7. BACLOFEN [Concomitant]
  8. TYSABRI [Suspect]
     Indication: MULTIPLE SCLEROSIS
     Route: 042
     Dates: start: 20080722
  9. ALPRAZOLAM [Concomitant]
     Indication: ANXIETY
  10. MAXZIDE [Concomitant]
  11. PROVIGIL [Concomitant]
     Indication: FATIGUE

REACTIONS (2)
  - PNEUMONIA [None]
  - EMPYEMA [None]
